FAERS Safety Report 9093781 (Version 1)
Quarter: 2013Q1

REPORT INFORMATION
  Report Type: Spontaneous
  Country: US (occurrence: None)
  Receive Date: 20130214
  Receipt Date: 20130214
  Transmission Date: 20140127
  Serious: Yes (Other)
  Sender: FDA-Public Use
  Company Number: None

PATIENT
  Age: 16 Year
  Sex: Female

DRUGS (1)
  1. SUCRALFATE [Suspect]
     Indication: GASTRIC ULCER
     Dosage: 1 TABLET
     Route: 048
     Dates: start: 20121231, end: 201302

REACTIONS (3)
  - Nausea [None]
  - Diarrhoea [None]
  - Depression [None]
